FAERS Safety Report 24396325 (Version 1)
Quarter: 2024Q4

REPORT INFORMATION
  Report Type: Spontaneous
  Country: IL (occurrence: IL)
  Receive Date: 20241004
  Receipt Date: 20241004
  Transmission Date: 20250114
  Serious: Yes (Hospitalization)
  Sender: REGENERON
  Company Number: IL-ULTRAGENYX PHARMACEUTICAL INC.-IL-UGX-24-01838

PATIENT
  Sex: Female

DRUGS (1)
  1. EVKEEZA [Suspect]
     Active Substance: EVINACUMAB-DGNB
     Indication: Product used for unknown indication
     Dosage: UNK
     Dates: start: 20240916

REACTIONS (1)
  - Malaise [Unknown]
